FAERS Safety Report 10941778 (Version 2)
Quarter: 2015Q2

REPORT INFORMATION
  Report Type: Spontaneous
  Country: US (occurrence: US)
  Receive Date: 20150322
  Receipt Date: 20150524
  Transmission Date: 20150821
  Serious: No
  Sender: FDA-Public Use
  Company Number: US-JNJFOC-20130912554

PATIENT
  Sex: Female
  Weight: 63.5 kg

DRUGS (3)
  1. INVOKANA [Suspect]
     Active Substance: CANAGLIFLOZIN
     Indication: DIABETES MELLITUS
     Route: 048
     Dates: start: 20130903
  2. METFORMIN [Concomitant]
     Active Substance: METFORMIN HYDROCHLORIDE
     Indication: DIABETES MELLITUS
     Dates: start: 2003
  3. GLIPIZIDE. [Concomitant]
     Active Substance: GLIPIZIDE
     Indication: DIABETES MELLITUS
     Dates: start: 2003

REACTIONS (1)
  - Drug dispensing error [Unknown]
